FAERS Safety Report 9023663 (Version 1)
Quarter: 2013Q1

REPORT INFORMATION
  Report Type: Report from Study
  Country: US (occurrence: US)
  Receive Date: 20130121
  Receipt Date: 20130121
  Transmission Date: 20140127
  Serious: Yes (Death)
  Sender: FDA-Public Use
  Company Number: US-ASTELLAS-2013US000704

PATIENT
  Age: 47 None
  Sex: Female

DRUGS (3)
  1. ERLOTINIB TABLET [Suspect]
     Indication: NEOPLASM MALIGNANT
     Dosage: 100 MG, UID/QD
     Route: 048
     Dates: start: 20121222, end: 20130115
  2. COMBIGAN [Concomitant]
     Indication: PRODUCT USED FOR UNKNOWN INDICATION
     Dosage: UNK
     Route: 065
  3. MULTIVITAMINS, PLAIN [Concomitant]
     Indication: PRODUCT USED FOR UNKNOWN INDICATION
     Dosage: UNK
     Route: 065

REACTIONS (1)
  - Death [Fatal]
